FAERS Safety Report 4355793-9 (Version None)
Quarter: 2004Q2

REPORT INFORMATION
  Report Type: 
  Country: None (occurrence: None)
  Receive Date: 20040511
  Receipt Date: 20040415
  Transmission Date: 20050107
  Serious: Yes (Hospitalization, Other)
  Sender: FDA-Public Use
  Company Number: PHBS2004BR05166

PATIENT
  Age: 47 Year
  Sex: Female
  Weight: 70 kg

DRUGS (8)
  1. TEGRETOL-XR [Suspect]
     Indication: EPILEPSY
     Dosage: 400 MG, QD
     Route: 048
     Dates: start: 20040201
  2. PURAN T4 [Concomitant]
     Indication: HYPOTHYROIDISM
     Dosage: 1 TABLET/DAY
     Route: 048
  3. DAFORIN [Suspect]
     Indication: DEPRESSION
  4. RIVOTRIL [Suspect]
     Dosage: 2 MG, A TABLET AT NIGHT
     Dates: start: 20040401
  5. DIAZEPAM [Concomitant]
  6. TEGRETOL [Suspect]
     Indication: EPILEPSY
     Dosage: 200 MG, UNK
     Dates: start: 20040401
  7. TEGRETOL [Suspect]
     Dosage: 400 MG, UNK
  8. SYNTHROID [Concomitant]
     Dosage: 1 TABLET DAILY IN THE MORNING
     Dates: start: 20040401

REACTIONS (8)
  - CONVULSION [None]
  - COORDINATION ABNORMAL [None]
  - DEPRESSION [None]
  - DYSKINESIA [None]
  - HYPOAESTHESIA [None]
  - PARTIAL SEIZURES [None]
  - SOMNOLENCE [None]
  - WEIGHT INCREASED [None]
